FAERS Safety Report 5518450-9 (Version None)
Quarter: 2007Q4

REPORT INFORMATION
  Report Type: 
  Country: None (occurrence: None)
  Receive Date: 20071115
  Receipt Date: 20071105
  Transmission Date: 20080405
  Serious: Yes (Other)
  Sender: FDA-Public Use
  Company Number: US-PFIZER INC-2007093678

PATIENT
  Sex: Female

DRUGS (2)
  1. CADUET [Suspect]
     Indication: BLOOD PRESSURE
  2. CADUET [Suspect]
     Indication: BLOOD CHOLESTEROL

REACTIONS (3)
  - BLOOD URINE PRESENT [None]
  - POLLAKIURIA [None]
  - URGE INCONTINENCE [None]
